FAERS Safety Report 8971188 (Version 1)
Quarter: 2012Q4

REPORT INFORMATION
  Report Type: 
  Country: CA (occurrence: CA)
  Receive Date: 20121217
  Receipt Date: 20121217
  Transmission Date: 20130627
  Serious: Yes (Other)
  Sender: FDA-Public Use
  Company Number: CA-GLAXOSMITHKLINE-A1004597A

PATIENT
  Sex: Female

DRUGS (5)
  1. VOTRIENT [Suspect]
     Indication: RENAL CANCER METASTATIC
     Dosage: 800MG Per day
     Route: 048
     Dates: start: 20120730, end: 201211
  2. OLMETEC [Concomitant]
  3. IMOVANE [Concomitant]
  4. RIVOTRIL [Concomitant]
  5. TYLENOL [Concomitant]

REACTIONS (1)
  - Malignant neoplasm progression [Not Recovered/Not Resolved]
